FAERS Safety Report 8912449 (Version 2)
Quarter: 2012Q4

REPORT INFORMATION
  Report Type: Report from Study
  Country: JP (occurrence: JP)
  Receive Date: 20121115
  Receipt Date: 20121120
  Transmission Date: 20130627
  Serious: Yes (Hospitalization)
  Sender: FDA-Public Use
  Company Number: JP-VERTEX PHARMACEUTICAL INC.-2012-024505

PATIENT
  Age: 57 Year
  Sex: Male

DRUGS (11)
  1. VX-950 (TELAPREVIR) [Suspect]
     Indication: CHRONIC HEPATITIS C
     Dosage: 2250 mg, qd
     Route: 048
     Dates: start: 20120702, end: 20120923
  2. REBETOL [Suspect]
     Indication: CHRONIC HEPATITIS C
     Dosage: 800 mg, qd
     Route: 048
     Dates: start: 20120702, end: 20121008
  3. REBETOL [Suspect]
     Dosage: 600mg,800mg/2 days
     Route: 048
     Dates: start: 20121009
  4. PEGINTRON                          /01543001/ [Suspect]
     Indication: CHRONIC HEPATITIS C
     Dosage: 100 ?g/week
     Route: 058
     Dates: start: 20120702
  5. AMARYL [Concomitant]
     Dosage: 2 mg, qd
     Route: 048
  6. ACTOS [Concomitant]
     Dosage: 15 mg, qd
     Route: 048
     Dates: end: 20120723
  7. LOXOPROFEN                         /00890702/ [Concomitant]
     Dosage: 60 mg, qd prn
     Route: 048
     Dates: start: 20120702
  8. GOODMIN [Concomitant]
     Dosage: 0.25 mg, qd prn
     Route: 048
     Dates: start: 20120703
  9. GOODMIN [Concomitant]
     Dosage: 0.25 mg, UNK
     Route: 048
     Dates: end: 20120930
  10. KAMAG [Concomitant]
     Dosage: 9 g, qd
     Route: 048
  11. ALCENOL [Concomitant]
     Dosage: 12.5 mg, qd
     Route: 048
     Dates: end: 20121020

REACTIONS (7)
  - Pyrexia [Recovered/Resolved]
  - Chills [Recovered/Resolved]
  - Headache [Recovered/Resolved]
  - Back pain [Recovered/Resolved]
  - Decreased appetite [Recovered/Resolved]
  - Malaise [Not Recovered/Not Resolved]
  - Nausea [Recovered/Resolved]
